FAERS Safety Report 22354517 (Version 1)
Quarter: 2023Q2

REPORT INFORMATION
  Report Type: Spontaneous
  Country: FR (occurrence: FR)
  Receive Date: 20230523
  Receipt Date: 20230523
  Transmission Date: 20230722
  Serious: Yes (Hospitalization, Other)
  Sender: FDA-Public Use
  Company Number: None

PATIENT
  Age: 58 Year
  Sex: Male

DRUGS (1)
  1. SARCLISA [Suspect]
     Active Substance: ISATUXIMAB-IRFC
     Indication: Plasma cell myeloma
     Dosage: 1100 MG (200 ML/H)  ,1X
     Route: 042
     Dates: start: 20221122, end: 20221122

REACTIONS (3)
  - Neonatal hypoxia [Recovered/Resolved]
  - Dyspnoea [Recovered/Resolved]
  - Product administration error [Unknown]

NARRATIVE: CASE EVENT DATE: 20221122
